FAERS Safety Report 15089181 (Version 2)
Quarter: 2018Q3

REPORT INFORMATION
  Report Type: Report from Study
  Country: US (occurrence: US)
  Receive Date: 20180629
  Receipt Date: 20180702
  Transmission Date: 20181010
  Serious: No
  Sender: FDA-Public Use
  Company Number: US-SA-2018SA168745

PATIENT
  Age: 55 Year
  Sex: Male

DRUGS (5)
  1. ZETIA [Concomitant]
     Active Substance: EZETIMIBE
  2. ALIROCUMAB [Suspect]
     Active Substance: ALIROCUMAB
     Indication: LOW DENSITY LIPOPROTEIN INCREASED
     Dosage: 75 MG, QOW
     Route: 058
     Dates: start: 201804, end: 20180616
  3. ALIROCUMAB [Suspect]
     Active Substance: ALIROCUMAB
     Dosage: 75 UNK
     Route: 058
     Dates: start: 20180617
  4. AVODART [Concomitant]
     Active Substance: DUTASTERIDE
     Indication: PROPHYLAXIS
     Dosage: UNK UNK, QOD
  5. FISH OIL [Concomitant]
     Active Substance: FISH OIL

REACTIONS (6)
  - Diarrhoea [Not Recovered/Not Resolved]
  - Muscle spasms [Not Recovered/Not Resolved]
  - Dizziness [Unknown]
  - Hallucination [Not Recovered/Not Resolved]
  - Insomnia [Unknown]
  - Rash pruritic [Unknown]

NARRATIVE: CASE EVENT DATE: 201806
